FAERS Safety Report 8460035-9 (Version None)
Quarter: 2012Q2

REPORT INFORMATION
  Report Type: 
  Country: None (occurrence: None)
  Receive Date: 20120622
  Receipt Date: 20120613
  Transmission Date: 20120825
  Serious: Yes (Death, Hospitalization, Other)
  Sender: FDA-Public Use
  Company Number: US-BRISTOL-MYERS SQUIBB COMPANY-16656142

PATIENT
  Age: 65 Year
  Sex: Male

DRUGS (6)
  1. PACLITAXEL [Suspect]
     Indication: NON-SMALL CELL LUNG CANCER
     Route: 042
     Dates: start: 20120524, end: 20120524
  2. CARBOPLATIN [Suspect]
     Indication: NON-SMALL CELL LUNG CANCER
     Route: 042
     Dates: start: 20120524, end: 20120524
  3. CLOBETASOL PROPIONATE [Concomitant]
  4. PRAVACHOL [Concomitant]
  5. XALATAN [Concomitant]
  6. TOPROL-XL [Concomitant]

REACTIONS (2)
  - ACUTE MYELOID LEUKAEMIA [None]
  - TUMOUR LYSIS SYNDROME [None]
